FAERS Safety Report 4896619-4 (Version None)
Quarter: 2006Q1

REPORT INFORMATION
  Report Type: 
  Country: None (occurrence: None)
  Receive Date: 20060131
  Receipt Date: 20051226
  Transmission Date: 20060701
  Serious: Yes (Congenital Anomaly)
  Sender: FDA-Public Use
  Company Number: JP-SOLVAY-00305004308

PATIENT
  Age: 0 Day
  Sex: Female
  Weight: 3.124 kg

DRUGS (7)
  1. LUVOX [Suspect]
     Indication: DRUG EXPOSURE DURING PREGNANCY
     Dosage: DAILY DOSE: 50 MILLIGRAM(S)
     Route: 064
     Dates: start: 20050301, end: 20050825
  2. ARTANE [Suspect]
     Indication: DRUG EXPOSURE DURING PREGNANCY
     Dosage: DAILY DOSE: 4 MILLIGRAM(S)
     Route: 064
     Dates: start: 20050301, end: 20050825
  3. RIVOTRIL [Suspect]
     Indication: DRUG EXPOSURE DURING PREGNANCY
     Dosage: DAILY DOSE: 1 MILLIGRAM(S)
     Route: 064
     Dates: start: 20050301, end: 20050825
  4. SEROQUEL [Suspect]
     Indication: DRUG EXPOSURE DURING PREGNANCY
     Dosage: DAILY DOSE: 75 MILLIGRAM(S)
     Route: 064
     Dates: start: 20050301, end: 20050825
  5. HIBERNA [Suspect]
     Indication: DRUG EXPOSURE DURING PREGNANCY
     Dosage: DAILY DOSE: 75 MILLIGRAM(S)
     Route: 064
     Dates: start: 20050301, end: 20050825
  6. SILECE [Suspect]
     Indication: DRUG EXPOSURE DURING PREGNANCY
     Dosage: DAILY DOSE: 4 MILLIGRAM(S)
     Route: 064
     Dates: start: 20050301, end: 20050825
  7. RISPERDAL [Suspect]
     Indication: DRUG EXPOSURE DURING PREGNANCY
     Dosage: DAILY DOSE: 4 MILLIGRAM(S)
     Route: 064
     Dates: start: 20030801, end: 20050825

REACTIONS (7)
  - DRUG WITHDRAWAL SYNDROME NEONATAL [None]
  - EYE MOVEMENT DISORDER [None]
  - HYPOTONIA [None]
  - IRRITABILITY [None]
  - PYREXIA [None]
  - SOMNOLENCE [None]
  - TREMOR [None]
